FAERS Safety Report 25329221 (Version 1)
Quarter: 2025Q2

REPORT INFORMATION
  Report Type: Spontaneous
  Country: CA (occurrence: CA)
  Receive Date: 20250519
  Receipt Date: 20250519
  Transmission Date: 20250717
  Serious: Yes (Other)
  Sender: CELLTRION
  Company Number: CA-CELLTRION INC.-2025CA014605

PATIENT

DRUGS (1)
  1. RITUXIMAB [Suspect]
     Active Substance: RITUXIMAB
     Indication: Glomerulonephritis

REACTIONS (6)
  - Vomiting projectile [Unknown]
  - Muscle spasms [Unknown]
  - Nausea [Unknown]
  - Throat tightness [Unknown]
  - Urticaria [Unknown]
  - Intentional product use issue [Unknown]
